FAERS Safety Report 13938982 (Version 1)
Quarter: 2017Q3

REPORT INFORMATION
  Report Type: Spontaneous
  Country: US (occurrence: None)
  Receive Date: 20170906
  Receipt Date: 20170906
  Transmission Date: 20171127
  Serious: No
  Sender: FDA-Public Use
  Company Number: None

PATIENT
  Age: 7 Year
  Sex: Female
  Weight: 22.4 kg

DRUGS (3)
  1. DEXAMETHASONE. [Suspect]
     Active Substance: DEXAMETHASONE
     Dates: end: 20170830
  2. ONCASPAR [Suspect]
     Active Substance: PEGASPARGASE
     Dates: end: 20170902
  3. CYTARABINE. [Suspect]
     Active Substance: CYTARABINE
     Dates: end: 20170829

REACTIONS (9)
  - Hypoxia [None]
  - Hypertension [None]
  - Hallucination, visual [None]
  - Apnoea [None]
  - Cardio-respiratory arrest [None]
  - Mental status changes [None]
  - Computerised tomogram head abnormal [None]
  - Anxiety [None]
  - Headache [None]

NARRATIVE: CASE EVENT DATE: 20170831
